FAERS Safety Report 20456748 (Version 2)
Quarter: 2022Q1

REPORT INFORMATION
  Report Type: Report from Study
  Country: US (occurrence: US)
  Receive Date: 20220210
  Receipt Date: 20220224
  Transmission Date: 20220423
  Serious: Yes (Life-Threatening, Hospitalization)
  Sender: FDA-Public Use
  Company Number: US-CELGENE-USA-20220201786

PATIENT
  Age: 41 Year
  Sex: Female
  Weight: 64.9 kg

DRUGS (47)
  1. REVLIMID [Suspect]
     Active Substance: LENALIDOMIDE
     Indication: Plasma cell myeloma
     Dosage: 25 MILLIGRAM
     Route: 048
     Dates: start: 20150612, end: 20151030
  2. REVLIMID [Suspect]
     Active Substance: LENALIDOMIDE
     Route: 048
     Dates: start: 20151120, end: 20160105
  3. REVLIMID [Suspect]
     Active Substance: LENALIDOMIDE
     Dosage: 25 MILLIGRAM
     Route: 048
     Dates: start: 20160316, end: 20160426
  4. REVLIMID [Suspect]
     Active Substance: LENALIDOMIDE
     Dosage: 5 MILLIGRAM
     Route: 048
     Dates: start: 20200227, end: 20201001
  5. POMALIDOMIDE [Suspect]
     Active Substance: POMALIDOMIDE
     Indication: Plasma cell myeloma
     Dosage: 4 MILLIGRAM
     Route: 048
     Dates: start: 20201204, end: 20210723
  6. VELCADE [Suspect]
     Active Substance: BORTEZOMIB
     Indication: Plasma cell myeloma
     Route: 058
     Dates: start: 20141215, end: 20150612
  7. VELCADE [Suspect]
     Active Substance: BORTEZOMIB
     Route: 058
     Dates: start: 20150612, end: 20151030
  8. VELCADE [Suspect]
     Active Substance: BORTEZOMIB
     Route: 058
     Dates: start: 20190107, end: 20190304
  9. VELCADE [Suspect]
     Active Substance: BORTEZOMIB
     Route: 041
     Dates: start: 20220118, end: 20220128
  10. CISPLATIN [Suspect]
     Active Substance: CISPLATIN
     Indication: Plasma cell myeloma
     Route: 041
     Dates: start: 20151120, end: 20160105
  11. CISPLATIN [Suspect]
     Active Substance: CISPLATIN
     Route: 041
     Dates: start: 20220118, end: 20220120
  12. ETOPOSIDE [Suspect]
     Active Substance: ETOPOSIDE
     Indication: Plasma cell myeloma
     Route: 041
     Dates: start: 20151120, end: 20160105
  13. ETOPOSIDE [Suspect]
     Active Substance: ETOPOSIDE
     Route: 041
     Dates: start: 20220118, end: 20220120
  14. CYCLOPHOSPHAMIDE [Suspect]
     Active Substance: CYCLOPHOSPHAMIDE
     Indication: Plasma cell myeloma
     Route: 048
     Dates: start: 20141215, end: 20150612
  15. CYCLOPHOSPHAMIDE [Suspect]
     Active Substance: CYCLOPHOSPHAMIDE
     Route: 041
     Dates: start: 20151120, end: 20160105
  16. CYCLOPHOSPHAMIDE [Suspect]
     Active Substance: CYCLOPHOSPHAMIDE
     Route: 041
     Dates: start: 20190409, end: 20190911
  17. CYCLOPHOSPHAMIDE [Suspect]
     Active Substance: CYCLOPHOSPHAMIDE
     Dosage: 300 MILLIGRAM/SQ. METER
     Route: 041
     Dates: start: 20210820, end: 20210822
  18. CYCLOPHOSPHAMIDE [Suspect]
     Active Substance: CYCLOPHOSPHAMIDE
     Route: 041
     Dates: start: 20220118, end: 20220120
  19. DOXORUBICIN [Suspect]
     Active Substance: DOXORUBICIN
     Indication: Plasma cell myeloma
     Dosage: 20 MILLIGRAM
     Route: 041
     Dates: start: 20151120, end: 20160105
  20. DOXORUBICIN [Suspect]
     Active Substance: DOXORUBICIN
     Dosage: 30 MILLIGRAM/SQ. METER
     Route: 041
     Dates: start: 20220118, end: 20220120
  21. Idecabtagene vicleuc [Concomitant]
     Indication: Plasma cell myeloma
     Dosage: 30 MILLIGRAM/SQ. METER
     Route: 041
     Dates: start: 20210820, end: 20210822
  22. MELPHALAN [Concomitant]
     Active Substance: MELPHALAN
     Indication: Plasma cell myeloma
     Dosage: 354 MILLIGRAM
     Route: 041
     Dates: start: 20160130, end: 20160130
  23. DEXAMETHASONE [Concomitant]
     Active Substance: DEXAMETHASONE
     Indication: Plasma cell myeloma
     Route: 048
     Dates: start: 20141215, end: 20150612
  24. DEXAMETHASONE [Concomitant]
     Active Substance: DEXAMETHASONE
     Dosage: 5.7143 MILLIGRAM
     Route: 048
     Dates: start: 20150612, end: 20151030
  25. DEXAMETHASONE [Concomitant]
     Active Substance: DEXAMETHASONE
     Route: 048
     Dates: start: 20151120, end: 20160105
  26. DEXAMETHASONE [Concomitant]
     Active Substance: DEXAMETHASONE
     Dosage: 5.7143 MILLIGRAM
     Route: 048
     Dates: start: 20160316, end: 20160426
  27. DEXAMETHASONE [Concomitant]
     Active Substance: DEXAMETHASONE
     Route: 048
     Dates: start: 20190107, end: 20190304
  28. DEXAMETHASONE [Concomitant]
     Active Substance: DEXAMETHASONE
     Route: 048
     Dates: start: 20190409, end: 20190911
  29. DEXAMETHASONE [Concomitant]
     Active Substance: DEXAMETHASONE
     Dosage: 2.2857 MILLIGRAM
     Route: 048
     Dates: start: 20191002, end: 20191115
  30. DEXAMETHASONE [Concomitant]
     Active Substance: DEXAMETHASONE
     Route: 048
     Dates: start: 20200227, end: 20200311
  31. DEXAMETHASONE [Concomitant]
     Active Substance: DEXAMETHASONE
     Dosage: 2.8571 MILLIGRAM
     Route: 041
     Dates: start: 20200312, end: 20200423
  32. DEXAMETHASONE [Concomitant]
     Active Substance: DEXAMETHASONE
     Dosage: 20 MILLIGRAM
     Route: 041
     Dates: start: 20200507, end: 20201001
  33. DEXAMETHASONE [Concomitant]
     Active Substance: DEXAMETHASONE
     Dosage: 5.7143 MILLIGRAM
     Route: 048
     Dates: start: 20201204, end: 20210723
  34. CARFILZOMIB [Concomitant]
     Active Substance: CARFILZOMIB
     Indication: Plasma cell myeloma
     Route: 041
     Dates: start: 20151120, end: 20160105
  35. CARFILZOMIB [Concomitant]
     Active Substance: CARFILZOMIB
     Route: 041
     Dates: start: 20160316, end: 20160426
  36. CARFILZOMIB [Concomitant]
     Active Substance: CARFILZOMIB
     Route: 041
     Dates: start: 20190409, end: 20190410
  37. CARFILZOMIB [Concomitant]
     Active Substance: CARFILZOMIB
     Route: 041
     Dates: start: 20190416, end: 20190424
  38. CARFILZOMIB [Concomitant]
     Active Substance: CARFILZOMIB
     Route: 041
     Dates: start: 20190507, end: 20190523
  39. CARFILZOMIB [Concomitant]
     Active Substance: CARFILZOMIB
     Route: 041
     Dates: start: 20190605, end: 20190911
  40. CARFILZOMIB [Concomitant]
     Active Substance: CARFILZOMIB
     Route: 041
     Dates: start: 20191002, end: 20191115
  41. ELOTUZUMAB [Concomitant]
     Active Substance: ELOTUZUMAB
     Indication: Plasma cell myeloma
     Dosage: 1.4286 MILLIGRAM/KILOGRAM
     Route: 041
     Dates: start: 20201204, end: 20210125
  42. ELOTUZUMAB [Concomitant]
     Active Substance: ELOTUZUMAB
     Dosage: 20 MILLIGRAM/KILOGRAM
     Route: 041
     Dates: start: 20210201, end: 20210723
  43. DARATUMUMAB [Concomitant]
     Active Substance: DARATUMUMAB
     Indication: Plasma cell myeloma
     Route: 041
     Dates: start: 20190107, end: 20190301
  44. DARATUMUMAB [Concomitant]
     Active Substance: DARATUMUMAB
     Dosage: 2.2857 MILLIGRAM/KILOGRAM
     Route: 041
     Dates: start: 20200227, end: 20200423
  45. DARATUMUMAB [Concomitant]
     Active Substance: DARATUMUMAB
     Dosage: 1.1429 MILLIGRAM/KILOGRAM
     Route: 041
     Dates: start: 20200507, end: 20200730
  46. DARATUMUMAB [Concomitant]
     Active Substance: DARATUMUMAB
     Route: 058
     Dates: start: 20200826, end: 20201021
  47. FLUDARABINE [Concomitant]
     Active Substance: FLUDARABINE PHOSPHATE
     Indication: Plasma cell myeloma
     Dosage: 30 MILLIGRAM/SQ. METER
     Route: 041
     Dates: start: 20210820, end: 20210822

REACTIONS (1)
  - Cellulitis [Recovered/Resolved]

NARRATIVE: CASE EVENT DATE: 20220202
